FAERS Safety Report 7865256-1 (Version None)
Quarter: 2011Q4

REPORT INFORMATION
  Report Type: 
  Country: None (occurrence: None)
  Receive Date: 20111028
  Receipt Date: 20101109
  Transmission Date: 20120403
  Serious: No
  Sender: FDA-Public Use
  Company Number: US-GLAXOSMITHKLINE-A0891418A

PATIENT
  Age: 75 Year
  Sex: Male

DRUGS (4)
  1. LIPITOR [Concomitant]
  2. ALBUTEROL [Concomitant]
  3. COUMADIN [Concomitant]
  4. ADVAIR DISKUS 100/50 [Suspect]
     Indication: CHRONIC OBSTRUCTIVE PULMONARY DISEASE
     Dosage: 1PUFF PER DAY
     Route: 055
     Dates: start: 20101104

REACTIONS (1)
  - DYSPHONIA [None]
